FAERS Safety Report 14426970 (Version 1)
Quarter: 2018Q1

REPORT INFORMATION
  Report Type: Spontaneous
  Country: US (occurrence: US)
  Receive Date: 20180123
  Receipt Date: 20180123
  Transmission Date: 20180509
  Serious: Yes (Hospitalization, Other)
  Sender: FDA-Public Use
  Company Number: US-STANDARD HOMEOPATHIC COMPANY-2040644

PATIENT
  Sex: Female

DRUGS (1)
  1. HYLAND^S BABY NIGHTTIME TINY COLD SYRUP [Suspect]
     Active Substance: HOMEOPATHICS
     Indication: NASOPHARYNGITIS
     Route: 048

REACTIONS (1)
  - Seizure [None]
